FAERS Safety Report 4588471-1 (Version None)
Quarter: 2005Q1

REPORT INFORMATION
  Report Type: 
  Country: None (occurrence: None)
  Receive Date: 20050222
  Receipt Date: 20050215
  Transmission Date: 20050727
  Serious: Yes (Hospitalization)
  Sender: FDA-Public Use
  Company Number: US-BRISTOL-MYERS SQUIBB COMPANY-12864716

PATIENT
  Age: 63 Year
  Sex: Male
  Weight: 58 kg

DRUGS (4)
  1. CARBOPLATIN [Suspect]
     Indication: NON-SMALL CELL LUNG CANCER
     Dosage: CARBOPLATIN INFUSION (AUC=6) ADMINISTERED ON 28-JAN-2005 (COURSE 1). TOTAL DOSE ADMINISTERED 589 MG.
     Route: 042
     Dates: start: 20050128
  2. PACLITAXEL [Suspect]
     Indication: NON-SMALL CELL LUNG CANCER
     Dosage: PACLITAXEL INFUSION ADMINISTERED ON 28-JAN-2005 (COURSE 1). TOTAL DOSE ADMINISTERED 360 MG.
     Route: 042
     Dates: start: 20050128
  3. LORTAB [Suspect]
     Dosage: LORTAB 7.5 MG 1 TO 2 PO Q 4-6 HRS. PRN
     Route: 048
  4. OXYCONTIN [Suspect]
     Dosage: OXYCONTIN 20 MG BID

REACTIONS (6)
  - CANCER PAIN [None]
  - CARDIO-RESPIRATORY ARREST [None]
  - CONSTIPATION [None]
  - DEHYDRATION [None]
  - PLATELET COUNT DECREASED [None]
  - SEPSIS [None]
